FAERS Safety Report 9824150 (Version 3)
Quarter: 2014Q4

REPORT INFORMATION
  Report Type: Spontaneous
  Country: US (occurrence: US)
  Receive Date: 20140116
  Receipt Date: 20141110
  Transmission Date: 20150529
  Serious: Yes (Hospitalization, Other)
  Sender: FDA-Public Use
  Company Number: US-GLAXOSMITHKLINE-A1056174A

PATIENT
  Age: 79 Year
  Sex: Female

DRUGS (9)
  1. SIMVASTATIN. [Concomitant]
     Active Substance: SIMVASTATIN
  2. VITAMINS [Concomitant]
     Active Substance: VITAMINS
  3. OXYGEN. [Concomitant]
     Active Substance: OXYGEN
  4. VITAMIN C [Concomitant]
     Active Substance: ASCORBIC ACID
  5. ADVAIR DISKUS [Suspect]
     Active Substance: FLUTICASONE PROPIONATE\SALMETEROL XINAFOATE
     Indication: CHRONIC OBSTRUCTIVE PULMONARY DISEASE
     Dosage: 250/50 MCG 1 PUFF TWICE DAILY THEN REDUCED TO ONCE PUFF ONCE DAILY ON 2011, THEN INCREASED TO 1[...]
     Route: 055
     Dates: start: 201003
  6. SPIRIVA [Concomitant]
     Active Substance: TIOTROPIUM BROMIDE MONOHYDRATE
  7. VITAMIN B12 [Concomitant]
     Active Substance: CYANOCOBALAMIN
  8. BABY ASPIRIN [Concomitant]
     Active Substance: ASPIRIN
  9. AMBIEN [Concomitant]
     Active Substance: ZOLPIDEM TARTRATE

REACTIONS (7)
  - Pulmonary congestion [Recovering/Resolving]
  - Dry mouth [Recovering/Resolving]
  - Dyspnoea [Recovering/Resolving]
  - Lower limb fracture [Unknown]
  - Product quality issue [Unknown]
  - Clostridium difficile infection [Unknown]
  - Leukoplakia oral [Recovering/Resolving]

NARRATIVE: CASE EVENT DATE: 2011
